FAERS Safety Report 9738935 (Version 2)
Quarter: 2013Q4

REPORT INFORMATION
  Report Type: Spontaneous
  Country: DE (occurrence: DE)
  Receive Date: 20131209
  Receipt Date: 20131209
  Transmission Date: 20140711
  Serious: Yes (Other)
  Sender: FDA-Public Use
  Company Number: DE-ROCHE-1233382

PATIENT
  Age: 76 Year
  Sex: Male
  Weight: 84 kg

DRUGS (9)
  1. AVASTIN [Suspect]
     Indication: COLORECTAL CANCER METASTATIC
     Route: 042
     Dates: start: 2008, end: 2008
  2. AVASTIN [Suspect]
     Route: 042
     Dates: start: 2009, end: 2009
  3. AVASTIN [Suspect]
     Route: 042
     Dates: start: 20121203, end: 20130916
  4. XELODA [Suspect]
     Indication: COLORECTAL CANCER METASTATIC
     Route: 048
     Dates: start: 20121203, end: 20130916
  5. ASS [Concomitant]
     Indication: CORONARY ARTERY DISEASE
     Route: 065
  6. ASS [Concomitant]
     Indication: VASCULAR GRAFT
  7. VALSARTAN [Concomitant]
     Indication: CORONARY ARTERY DISEASE
     Route: 065
  8. VALSARTAN [Concomitant]
     Indication: VASCULAR GRAFT
  9. TOREM [Concomitant]
     Route: 065

REACTIONS (2)
  - Vitreous haemorrhage [Recovering/Resolving]
  - Vitreous detachment [Recovering/Resolving]
